FAERS Safety Report 7148345-9 (Version None)
Quarter: 2010Q4

REPORT INFORMATION
  Report Type: 
  Country: None (occurrence: None)
  Receive Date: 20101209
  Receipt Date: 20101129
  Transmission Date: 20110411
  Serious: Yes (Hospitalization, Other)
  Sender: FDA-Public Use
  Company Number: CN-NOVOPROD-319382

PATIENT
  Age: 55 Year
  Sex: Male

DRUGS (1)
  1. NOVOLIN R [Suspect]
     Indication: DIABETES MELLITUS
     Dosage: 300U
     Route: 042

REACTIONS (4)
  - HYPOGLYCAEMIC COMA [None]
  - INCORRECT ROUTE OF DRUG ADMINISTRATION [None]
  - RENAL IMPAIRMENT [None]
  - VASCULAR INJURY [None]
